FAERS Safety Report 14145737 (Version 10)
Quarter: 2018Q2

REPORT INFORMATION
  Report Type: Report from Study
  Country: US (occurrence: US)
  Receive Date: 20171031
  Receipt Date: 20180417
  Transmission Date: 20180711
  Serious: Yes (Life-Threatening, Other)
  Sender: FDA-Public Use
  Company Number: US-TESARO, INC-US-2017TSO02966

PATIENT

DRUGS (7)
  1. CELEXA [Concomitant]
     Active Substance: CITALOPRAM HYDROBROMIDE
     Indication: DEPRESSION
     Dosage: UNK
  2. ZEJULA [Suspect]
     Active Substance: NIRAPARIB
     Dosage: 200 MG, QD
     Route: 048
  3. ZEJULA [Suspect]
     Active Substance: NIRAPARIB
     Dosage: 300 MG, QD
     Route: 048
  4. ZEJULA [Suspect]
     Active Substance: NIRAPARIB
     Dosage: 200 MG ALTERNATING WITH 100 MG QD
     Route: 048
  5. ZEJULA [Suspect]
     Active Substance: NIRAPARIB
     Indication: OVARIAN CANCER
     Dosage: 300 MG, QD
     Route: 048
     Dates: start: 20170911, end: 20171004
  6. ZEJULA [Suspect]
     Active Substance: NIRAPARIB
     Dosage: 200 MG ALTERNATING WITH 100 MG QD
     Route: 048
     Dates: start: 20171229
  7. ZEJULA [Suspect]
     Active Substance: NIRAPARIB
     Dosage: 200 MG ALTERNATING WITH 100 MG QD
     Route: 048
     Dates: end: 20180412

REACTIONS (22)
  - Transfusion [Not Recovered/Not Resolved]
  - Anaemia [Not Recovered/Not Resolved]
  - Stress [Not Recovered/Not Resolved]
  - Contusion [Not Recovered/Not Resolved]
  - Haemoglobin decreased [Recovering/Resolving]
  - Asthenia [Not Recovered/Not Resolved]
  - Adverse event [Not Recovered/Not Resolved]
  - Dysgeusia [Not Recovered/Not Resolved]
  - Depression [Not Recovered/Not Resolved]
  - Inappropriate schedule of drug administration [Recovered/Resolved]
  - Blood count abnormal [Not Recovered/Not Resolved]
  - Platelet count decreased [Not Recovered/Not Resolved]
  - Pain in extremity [Not Recovered/Not Resolved]
  - Nausea [Not Recovered/Not Resolved]
  - Bruxism [Not Recovered/Not Resolved]
  - Tension [Not Recovered/Not Resolved]
  - Dehydration [Not Recovered/Not Resolved]
  - Emotional distress [Not Recovered/Not Resolved]
  - Muscle spasms [Not Recovered/Not Resolved]
  - Red blood cell count decreased [Not Recovered/Not Resolved]
  - White blood cell count decreased [Not Recovered/Not Resolved]
  - Decreased appetite [Not Recovered/Not Resolved]

NARRATIVE: CASE EVENT DATE: 201709
